FAERS Safety Report 12629627 (Version 2)
Quarter: 2016Q3

REPORT INFORMATION
  Report Type: Spontaneous
  Country: JP (occurrence: JP)
  Receive Date: 20160808
  Receipt Date: 20160816
  Transmission Date: 20161109
  Serious: No
  Sender: FDA-Public Use
  Company Number: JP-GLAXOSMITHKLINE-JP2016JPN103541

PATIENT
  Age: 81 Year
  Sex: Female

DRUGS (5)
  1. ALENDRONATE [Concomitant]
     Active Substance: ALENDRONATE SODIUM
  2. SENNOSIDE [Concomitant]
     Active Substance: SENNOSIDES
  3. REQUIP [Suspect]
     Active Substance: ROPINIROLE HYDROCHLORIDE
     Indication: PARKINSON^S DISEASE
     Dosage: 8 MG, QD
     Route: 048
  4. DOPACOL [Concomitant]
     Active Substance: CARBIDOPA\LEVODOPA
  5. COMTAN [Concomitant]
     Active Substance: ENTACAPONE

REACTIONS (2)
  - Suffocation feeling [Recovered/Resolved]
  - Dyspnoea [Recovered/Resolved]

NARRATIVE: CASE EVENT DATE: 20160711
